FAERS Safety Report 6598760-7 (Version None)
Quarter: 2010Q1

REPORT INFORMATION
  Report Type: 
  Country: None (occurrence: None)
  Receive Date: 20100224
  Receipt Date: 20100210
  Transmission Date: 20100710
  Serious: Yes (Other)
  Sender: FDA-Public Use
  Company Number: FR-PFIZER INC-2010017251

PATIENT
  Sex: Female

DRUGS (2)
  1. GENOTONORM [Suspect]
     Dosage: 0.2 MG, 1X/DAY
  2. GENOTONORM [Suspect]
     Dosage: 0.5 MG, 1X/DAY

REACTIONS (3)
  - DIZZINESS [None]
  - HYPOTENSION [None]
  - MUSCLE RIGIDITY [None]
